FAERS Safety Report 5402341-8 (Version None)
Quarter: 2007Q3

REPORT INFORMATION
  Report Type: 
  Country: None (occurrence: None)
  Receive Date: 20070801
  Receipt Date: 20070724
  Transmission Date: 20080115
  Serious: Yes (Other)
  Sender: FDA-Public Use
  Company Number: US-ELI_LILLY_AND_COMPANY-US200706003833

PATIENT
  Age: 66 Year
  Sex: Female
  Weight: 64.399 kg

DRUGS (1)
  1. GEMZAR [Suspect]
     Indication: ENDOMETRIAL CANCER
     Dosage: 1672 MG, OTHER
     Route: 042
     Dates: start: 20070518

REACTIONS (2)
  - MALIGNANT NEOPLASM PROGRESSION [None]
  - PULMONARY EMBOLISM [None]
